FAERS Safety Report 15207715 (Version 1)
Quarter: 2018Q3

REPORT INFORMATION
  Report Type: Spontaneous
  Country: US (occurrence: US)
  Receive Date: 20180727
  Receipt Date: 20180727
  Transmission Date: 20181010
  Serious: No
  Sender: FDA-Public Use
  Company Number: US-ALLERGAN-1754845US

PATIENT
  Sex: Male
  Weight: 117.91 kg

DRUGS (1)
  1. ANDRODERM [Suspect]
     Active Substance: TESTOSTERONE
     Indication: BLOOD TESTOSTERONE DECREASED
     Dosage: 1 PATCH
     Route: 062
     Dates: start: 20170919

REACTIONS (3)
  - Application site erythema [Recovered/Resolved]
  - Intentional product misuse [Unknown]
  - Product adhesion issue [Unknown]
